FAERS Safety Report 11751885 (Version 2)
Quarter: 2015Q4

REPORT INFORMATION
  Report Type: Spontaneous
  Country: UA (occurrence: UA)
  Receive Date: 20151118
  Receipt Date: 20151127
  Transmission Date: 20160304
  Serious: Yes (Hospitalization)
  Sender: FDA-Public Use
  Company Number: UA-ASTRAZENECA-2015SF10418

PATIENT
  Age: 38 Year
  Sex: Female
  Weight: 170 kg

DRUGS (2)
  1. METFORMIN [Concomitant]
     Active Substance: METFORMIN HYDROCHLORIDE
     Route: 048
  2. FORXIGA [Suspect]
     Active Substance: DAPAGLIFLOZIN
     Indication: TYPE 2 DIABETES MELLITUS
     Route: 048
     Dates: start: 201509

REACTIONS (4)
  - Body temperature increased [Unknown]
  - Treatment noncompliance [Unknown]
  - Pulmonary artery thrombosis [Recovered/Resolved]
  - Venous thrombosis limb [Recovered/Resolved with Sequelae]
